FAERS Safety Report 23898820 (Version 1)
Quarter: 2024Q2

REPORT INFORMATION
  Report Type: Spontaneous
  Country: US (occurrence: US)
  Receive Date: 20240525
  Receipt Date: 20240525
  Transmission Date: 20240716
  Serious: Yes (Hospitalization, Disabling, Other)
  Sender: FDA-Public Use
  Company Number: US-GLANDPHARMA-US-2024GLNSPO00170

PATIENT
  Age: 82 Year
  Sex: Female
  Weight: 36 kg

DRUGS (2)
  1. LEVOFLOXACIN [Suspect]
     Active Substance: LEVOFLOXACIN
     Indication: Pneumonia
     Route: 065
  2. VITAMIN D NOS [Concomitant]
     Active Substance: CHOLECALCIFEROL\ERGOCALCIFEROL
     Indication: Product used for unknown indication
     Route: 065

REACTIONS (12)
  - Pleural effusion [Unknown]
  - Abnormal faeces [Unknown]
  - Pulmonary mass [Unknown]
  - Atrial fibrillation [Unknown]
  - Urine analysis abnormal [Unknown]
  - Hypoaesthesia [Unknown]
  - Fluid retention [Unknown]
  - Fall [Unknown]
  - Pain in extremity [Unknown]
  - Femur fracture [Unknown]
  - Neuropathy peripheral [Unknown]
  - Tendon pain [Unknown]

NARRATIVE: CASE EVENT DATE: 20240310
